FAERS Safety Report 17186762 (Version 1)
Quarter: 2019Q4

REPORT INFORMATION
  Report Type: Spontaneous
  Country: US (occurrence: US)
  Receive Date: 20191220
  Receipt Date: 20191220
  Transmission Date: 20200122
  Serious: Yes (Other)
  Sender: FDA-Public Use
  Company Number: US-BAUSCH-BL-2019-064796

PATIENT
  Age: 72 Year
  Sex: Female

DRUGS (3)
  1. LATANOPROST OPHTHALMIC SOLUTION 0.005% [Suspect]
     Active Substance: LATANOPROST
     Dosage: 1 DROP IN EACH EYE AT BEDTIME
     Route: 047
     Dates: start: 2019, end: 20191201
  2. VITAMINS [Concomitant]
     Active Substance: VITAMINS
     Indication: PRODUCT USED FOR UNKNOWN INDICATION
  3. LATANOPROST OPHTHALMIC SOLUTION 0.005% [Suspect]
     Active Substance: LATANOPROST
     Indication: GLAUCOMA
     Dosage: 1 DROP IN EACH EYE AT BEDTIME
     Route: 047
     Dates: start: 20190715, end: 20190911

REACTIONS (7)
  - Hypotension [Recovered/Resolved]
  - Dysgeusia [Recovered/Resolved]
  - Abnormal dreams [Recovered/Resolved]
  - Oral discomfort [Recovered/Resolved]
  - Hallucinations, mixed [Recovered/Resolved]
  - Nightmare [Recovered/Resolved]
  - Burning sensation [Recovered/Resolved]

NARRATIVE: CASE EVENT DATE: 2019
